FAERS Safety Report 9940745 (Version 1)
Quarter: 2014Q1

REPORT INFORMATION
  Report Type: Spontaneous
  Country: US (occurrence: US)
  Receive Date: 20140303
  Receipt Date: 20140303
  Transmission Date: 20141002
  Serious: Yes (Death, Hospitalization, Other)
  Sender: FDA-Public Use
  Company Number: US-ACTAVIS-2014-03148

PATIENT
  Age: 39 Year
  Sex: Male

DRUGS (1)
  1. METFORMIN HYDROCHLORIDE EXTENDED RELEASE (WATSON LABORATORIES) [Suspect]
     Indication: INTENTIONAL OVERDOSE
     Dosage: 50000 MG, SINGLE( 50 TABLETS OF 1000 MG EACH)
     Route: 048

REACTIONS (6)
  - Lactic acidosis [Fatal]
  - Cardiac arrest [Fatal]
  - Renal failure [Fatal]
  - Acute respiratory distress syndrome [Fatal]
  - Intentional overdose [Fatal]
  - Transaminases increased [Unknown]
